FAERS Safety Report 17153102 (Version 4)
Quarter: 2020Q4

REPORT INFORMATION
  Report Type: Report from Study
  Country: CA (occurrence: CA)
  Receive Date: 20191213
  Receipt Date: 20201130
  Transmission Date: 20210113
  Serious: Yes (Life-Threatening, Hospitalization, Other)
  Sender: FDA-Public Use
  Company Number: CA-GLAXOSMITHKLINE-CA2019AMR224585

PATIENT
  Sex: Female

DRUGS (11)
  1. SYMBICORT [Suspect]
     Active Substance: BUDESONIDE\FORMOTEROL FUMARATE DIHYDRATE
     Indication: ASTHMA
     Dosage: 2 PUFF(S), BID
     Dates: start: 20191118
  2. PREDNISONE. [Suspect]
     Active Substance: PREDNISONE
     Indication: PRODUCT USE IN UNAPPROVED INDICATION
     Dosage: 5 MG, QD
     Route: 048
  3. SALBUTAMOL SULPHATE [Suspect]
     Active Substance: ALBUTEROL SULFATE
     Indication: EOSINOPHILIC GRANULOMATOSIS WITH POLYANGIITIS
     Dosage: 300 MG, Z, MONTHLY
  4. NUCALA [Suspect]
     Active Substance: MEPOLIZUMAB
     Indication: EOSINOPHILIC GRANULOMATOSIS WITH POLYANGIITIS
     Dosage: UNK
     Dates: start: 20200225
  5. NUCALA [Suspect]
     Active Substance: MEPOLIZUMAB
     Dosage: 300 MG, Z(MONTHLY)
  6. PREDNISONE. [Suspect]
     Active Substance: PREDNISONE
     Dosage: 1 MG, QD (AS OF 1 DEC 20 X 29 DAYS.)
     Route: 048
  7. NUCALA [Suspect]
     Active Substance: MEPOLIZUMAB
     Dosage: UNK
     Dates: start: 20200515
  8. PREDNISONE. [Suspect]
     Active Substance: PREDNISONE
     Dosage: 2 MG, QD
     Route: 048
  9. ADVAIR HFA [Suspect]
     Active Substance: FLUTICASONE PROPIONATE\SALMETEROL XINAFOATE
     Indication: PRODUCT USE IN UNAPPROVED INDICATION
     Dosage: 2 PUFF(S), PRN(AS PER NEEDED)
     Dates: end: 20191117
  10. NUCALA [Suspect]
     Active Substance: MEPOLIZUMAB
     Dosage: UNK
     Dates: start: 20200417
  11. SEEBRI [Suspect]
     Active Substance: GLYCOPYRROLATE
     Indication: PRODUCT USE IN UNAPPROVED INDICATION
     Dosage: 1 PUFF(S), QD

REACTIONS (21)
  - Organ failure [Unknown]
  - Renal impairment [Unknown]
  - Wheezing [Recovered/Resolved]
  - Vasculitis [Unknown]
  - Pneumonia [Unknown]
  - Cardiomyopathy [Unknown]
  - Cardiac failure [Unknown]
  - Therapeutic product effect incomplete [Unknown]
  - Pulmonary alveolar haemorrhage [Unknown]
  - Eosinophilic granulomatosis with polyangiitis [Unknown]
  - Sleep disorder due to a general medical condition [Recovering/Resolving]
  - Asthma [Recovering/Resolving]
  - Arrhythmia [Unknown]
  - Shock [Unknown]
  - Erythema [Unknown]
  - Peripheral swelling [Unknown]
  - Renal failure [Unknown]
  - Loss of personal independence in daily activities [Recovering/Resolving]
  - Terminal state [Unknown]
  - Lung disorder [Unknown]
  - Dyspnoea [Recovered/Resolved]
